FAERS Safety Report 23686661 (Version 1)
Quarter: 2024Q1

REPORT INFORMATION
  Report Type: Spontaneous
  Country: CA (occurrence: CA)
  Receive Date: 20240329
  Receipt Date: 20240329
  Transmission Date: 20240410
  Serious: Yes (Other)
  Sender: FDA-Public Use
  Company Number: CA-SUN PHARMACEUTICAL INDUSTRIES LTD-2024R1-438926

PATIENT
  Age: 6 Month
  Sex: Male

DRUGS (3)
  1. CALCITRIOL [Suspect]
     Active Substance: CALCITRIOL
     Indication: Hypocalcaemia
     Dosage: 0.2 MICROGRAM, DAILY
     Route: 042
  2. MAGNESIUM [Suspect]
     Active Substance: MAGNESIUM
     Indication: Hypocalcaemia
     Dosage: 9MG/KG/D
     Route: 048
  3. CALCIUM [Suspect]
     Active Substance: CALCIUM
     Indication: Hypocalcaemia
     Dosage: 2000 MILLIGRAM, DAILY
     Route: 048

REACTIONS (2)
  - Hyperparathyroidism [Unknown]
  - Therapy non-responder [Unknown]
